FAERS Safety Report 8797593 (Version 2)
Quarter: 2016Q1

REPORT INFORMATION
  Report Type: Report from Study
  Country: US (occurrence: US)
  Receive Date: 20120920
  Receipt Date: 20160211
  Transmission Date: 20160526
  Serious: Yes (Hospitalization, Other)
  Sender: FDA-Public Use
  Company Number: US-AMGEN-USASP2012059073

PATIENT
  Age: 67 Year
  Sex: Male

DRUGS (3)
  1. ENBREL [Suspect]
     Active Substance: ETANERCEPT
     Indication: RHEUMATOID ARTHRITIS
     Dosage: 50 UNK, QWK
     Route: 058
     Dates: start: 20070615, end: 20080615
  2. ENBREL [Suspect]
     Active Substance: ETANERCEPT
     Dosage: UNK UNK, UNK
     Route: 065
  3. HEPARIN [Suspect]
     Active Substance: HEPARIN SODIUM
     Indication: PRODUCT USED FOR UNKNOWN INDICATION
     Dosage: UNK
     Route: 065

REACTIONS (14)
  - Haemorrhage intracranial [Unknown]
  - Fall [Recovered/Resolved]
  - Angiopathy [Recovered/Resolved]
  - Drug hypersensitivity [Recovered/Resolved with Sequelae]
  - Staphylococcal infection [Recovered/Resolved]
  - Decubitus ulcer [Unknown]
  - Hip fracture [Recovered/Resolved]
  - Rheumatoid nodule [Not Recovered/Not Resolved]
  - Limb discomfort [Unknown]
  - Cerebrovascular accident [Recovered/Resolved with Sequelae]
  - Leg amputation [Recovered/Resolved]
  - Seizure [Unknown]
  - Pneumonia [Unknown]
  - Memory impairment [Unknown]

NARRATIVE: CASE EVENT DATE: 2008
